FAERS Safety Report 21955034 (Version 4)
Quarter: 2024Q2

REPORT INFORMATION
  Report Type: Spontaneous
  Country: JP (occurrence: JP)
  Receive Date: 20230206
  Receipt Date: 20240528
  Transmission Date: 20240716
  Serious: Yes (Death, Other)
  Sender: FDA-Public Use
  Company Number: JP-ALXN-A202301314AA

PATIENT
  Age: 74 Year
  Sex: Male
  Weight: 62.8 kg

DRUGS (3)
  1. ULTOMIRIS [Suspect]
     Active Substance: RAVULIZUMAB-CWVZ
     Indication: Paroxysmal nocturnal haemoglobinuria
     Dosage: 2700 MILLIGRAM, SINGLE
     Route: 042
     Dates: start: 20210311, end: 20210311
  2. ULTOMIRIS [Suspect]
     Active Substance: RAVULIZUMAB-CWVZ
     Dosage: 3300 MILLIGRAM
     Route: 042
     Dates: start: 20210325, end: 20221013
  3. ELTROMBOPAG OLAMINE [Concomitant]
     Active Substance: ELTROMBOPAG OLAMINE
     Indication: Aplastic anaemia
     Dosage: 100 MILLIGRAM, QD
     Route: 048
     Dates: start: 20171204, end: 20221117

REACTIONS (3)
  - Gastric cancer [Fatal]
  - Malignant neoplasm progression [Fatal]
  - Renal disorder [Unknown]

NARRATIVE: CASE EVENT DATE: 20220301
